FAERS Safety Report 4539769-4 (Version None)
Quarter: 2004Q4

REPORT INFORMATION
  Report Type: 
  Country: None (occurrence: None)
  Receive Date: 20041223
  Receipt Date: 20041208
  Transmission Date: 20050328
  Serious: Yes (Hospitalization, Other)
  Sender: FDA-Public Use
  Company Number: USA-2004-0016202

PATIENT
  Age: 56 Year
  Sex: Male
  Weight: 76.2 kg

DRUGS (9)
  1. OXYCONTIN [Suspect]
     Indication: PAIN
  2. NEURONTIN [Concomitant]
  3. RELAFEN [Concomitant]
  4. ULTRAM [Concomitant]
  5. PRILOSEC [Concomitant]
  6. METOPROLOL SUCCINATE [Concomitant]
  7. PROSCAR [Concomitant]
  8. ZOCOR [Concomitant]
  9. NITRO PATCH (GLYCERYL TRINITRATE) [Concomitant]

REACTIONS (22)
  - ABDOMINAL PAIN [None]
  - ABDOMINAL PAIN UPPER [None]
  - ANXIETY [None]
  - ASPARTATE AMINOTRANSFERASE [None]
  - ASPARTATE AMINOTRANSFERASE INCREASED [None]
  - BACK PAIN [None]
  - BLOOD AMYLASE [None]
  - BLOOD AMYLASE INCREASED [None]
  - CONSTIPATION [None]
  - DEHYDRATION [None]
  - DEPRESSION [None]
  - DIVERTICULITIS [None]
  - DRUG DEPENDENCE [None]
  - DRUG WITHDRAWAL SYNDROME [None]
  - HEADACHE [None]
  - HYPOAESTHESIA [None]
  - NAUSEA [None]
  - PAIN [None]
  - PAIN IN EXTREMITY [None]
  - PRURITUS [None]
  - RADICULOPATHY [None]
  - VOMITING [None]
